FAERS Safety Report 7122737-6 (Version None)
Quarter: 2010Q4

REPORT INFORMATION
  Report Type: 
  Country: None (occurrence: None)
  Receive Date: 20101124
  Receipt Date: 20101119
  Transmission Date: 20110411
  Serious: Yes (Other)
  Sender: FDA-Public Use
  Company Number: US-PFIZER INC-2010153319

PATIENT
  Sex: Male

DRUGS (1)
  1. VIAGRA [Suspect]
     Dosage: 400 MG, 1X/DAY
     Route: 048
     Dates: start: 20101119

REACTIONS (2)
  - ERECTION INCREASED [None]
  - PAINFUL ERECTION [None]
